FAERS Safety Report 9527962 (Version 1)
Quarter: 2013Q3

REPORT INFORMATION
  Report Type: Spontaneous
  Country: IT (occurrence: None)
  Receive Date: 20130913
  Receipt Date: 20130913
  Transmission Date: 20140515
  Serious: Yes (Hospitalization)
  Sender: FDA-Public Use
  Company Number: ENTC2013-0331

PATIENT
  Age: 64 Year
  Sex: Female

DRUGS (6)
  1. STAVELO [Suspect]
     Indication: PARKINSON^S DISEASE
     Dosage: 1 DOSAGE FORM ( 1 DOSAGE FOR , 1 IN 1 D)
     Route: 048
     Dates: start: 20130706, end: 20130713
  2. METFORMIN TEVA [Concomitant]
  3. PAROXETINE [Concomitant]
  4. LANSOX [Concomitant]
  5. SINEMET [Concomitant]
  6. ALGIX [Concomitant]

REACTIONS (4)
  - Confusional state [None]
  - Dyskinesia [None]
  - Hyperpyrexia [None]
  - Loss of consciousness [None]
